FAERS Safety Report 24867029 (Version 1)
Quarter: 2025Q1

REPORT INFORMATION
  Report Type: Spontaneous
  Country: AU (occurrence: AU)
  Receive Date: 20250121
  Receipt Date: 20250121
  Transmission Date: 20250408
  Serious: Yes (Hospitalization, Other)
  Sender: MARKSANS PHARMA LIMITED
  Company Number: AU-MARKSANS PHARMA LIMITED-MPL202500002

PATIENT

DRUGS (12)
  1. METFORMIN HYDROCHLORIDE [Suspect]
     Active Substance: METFORMIN HYDROCHLORIDE
     Indication: Type 2 diabetes mellitus
     Route: 048
  2. ESOMEPRAZOLE MAGNESIUM [Suspect]
     Active Substance: ESOMEPRAZOLE MAGNESIUM
     Indication: Gastrooesophageal reflux disease
     Route: 048
  3. SEMAGLUTIDE [Suspect]
     Active Substance: SEMAGLUTIDE
     Indication: Type 2 diabetes mellitus
     Route: 058
  4. SEMAGLUTIDE [Suspect]
     Active Substance: SEMAGLUTIDE
     Route: 058
  5. GLICLAZIDE [Suspect]
     Active Substance: GLICLAZIDE
     Indication: Type 2 diabetes mellitus
     Route: 048
  6. SITAGLIPTIN [Suspect]
     Active Substance: SITAGLIPTIN
     Indication: Type 2 diabetes mellitus
     Route: 048
  7. DAPAGLIFLOZIN [Suspect]
     Active Substance: DAPAGLIFLOZIN
     Indication: Type 2 diabetes mellitus
     Route: 048
  8. ACARBOSE [Suspect]
     Active Substance: ACARBOSE
     Indication: Type 2 diabetes mellitus
     Route: 048
  9. IRBESARTAN [Concomitant]
     Active Substance: IRBESARTAN
     Indication: Hypertension
     Route: 065
  10. ROSUVASTATIN [Concomitant]
     Active Substance: ROSUVASTATIN
     Indication: Dyslipidaemia
     Route: 065
  11. ATENOLOL [Concomitant]
     Active Substance: ATENOLOL
     Indication: Atrial fibrillation
     Route: 065
  12. DABIGATRAN [Concomitant]
     Active Substance: DABIGATRAN
     Indication: Atrial fibrillation
     Route: 065

REACTIONS (4)
  - Loss of consciousness [Recovered/Resolved]
  - Hypomagnesaemia [Recovered/Resolved]
  - Hypocalcaemia [Recovered/Resolved]
  - Therapeutic response decreased [Unknown]
